FAERS Safety Report 5921031-6 (Version None)
Quarter: 2008Q4

REPORT INFORMATION
  Report Type: 
  Country: None (occurrence: None)
  Receive Date: 20081016
  Receipt Date: 20081009
  Transmission Date: 20090506
  Serious: Yes (Life-Threatening)
  Sender: FDA-Public Use
  Company Number: RU-NOVOPROD-280248

PATIENT
  Sex: Female
  Weight: 132 kg

DRUGS (1)
  1. NOVOLOG MIX 70/30 [Suspect]
     Indication: DIABETES MELLITUS
     Dosage: 54 IU, UNK
     Route: 058
     Dates: start: 20071031

REACTIONS (1)
  - HYPOGLYCAEMIA [None]
